FAERS Safety Report 5131024-7 (Version None)
Quarter: 2006Q4

REPORT INFORMATION
  Report Type: 
  Country: None (occurrence: None)
  Receive Date: 20061019
  Receipt Date: 20061017
  Transmission Date: 20070319
  Serious: Yes (Hospitalization)
  Sender: FDA-Public Use
  Company Number: US-BOEHRINGER INGELHEIM PHARMACEUTICALS, INC.-2006-BP-12185BP

PATIENT
  Age: 69 Year
  Sex: Male

DRUGS (10)
  1. FLOMAX [Suspect]
     Indication: BENIGN PROSTATIC HYPERPLASIA
     Route: 048
     Dates: start: 20060601
  2. LOPRESSOR [Concomitant]
     Indication: BLOOD PRESSURE INCREASED
  3. GLUCOTROL [Concomitant]
     Indication: DIABETES MELLITUS
  4. FORTAMET [Concomitant]
     Indication: DIABETES MELLITUS
  5. VYTORIN [Concomitant]
     Indication: BLOOD CHOLESTEROL INCREASED
  6. AVODART [Concomitant]
     Indication: BENIGN PROSTATIC HYPERPLASIA
  7. ASPIRIN [Concomitant]
     Indication: CEREBROVASCULAR ACCIDENT PROPHYLAXIS
     Dates: end: 20061001
  8. DIOVAN [Concomitant]
     Indication: BLOOD PRESSURE INCREASED
  9. LEXAPRO [Concomitant]
     Indication: DEPRESSION
  10. INSULIN [Concomitant]
     Indication: DIABETES MELLITUS

REACTIONS (3)
  - HEAD INJURY [None]
  - SUBDURAL HAEMATOMA [None]
  - SYNCOPE [None]
